FAERS Safety Report 4586535-X (Version None)
Quarter: 2005Q1

REPORT INFORMATION
  Report Type: 
  Country: None (occurrence: None)
  Receive Date: 20050218
  Receipt Date: 20040128
  Transmission Date: 20050727
  Serious: Yes (Hospitalization)
  Sender: FDA-Public Use
  Company Number: US-BRISTOL-MYERS SQUIBB COMPANY-12491106

PATIENT
  Sex: Female

DRUGS (6)
  1. TAXOL [Suspect]
     Route: 042
     Dates: start: 20040122, end: 20040122
  2. COREG [Concomitant]
  3. DECADRON [Concomitant]
     Indication: PREMEDICATION
  4. BENADRYL [Concomitant]
     Indication: PREMEDICATION
  5. ZANTAC [Concomitant]
     Indication: PREMEDICATION
  6. ANZEMET [Concomitant]
     Indication: PREMEDICATION

REACTIONS (2)
  - FLUSHING [None]
  - HYPOTENSION [None]
